FAERS Safety Report 4755541-4 (Version None)
Quarter: 2005Q3

REPORT INFORMATION
  Report Type: 
  Country: None (occurrence: None)
  Receive Date: 20050829
  Receipt Date: 20050813
  Transmission Date: 20060218
  Serious: Yes (Other)
  Sender: FDA-Public Use
  Company Number: 2005114165

PATIENT
  Age: 18 Year
  Sex: Male
  Weight: 72.5755 kg

DRUGS (1)
  1. DRAMAMINE [Suspect]
     Indication: MOTION SICKNESS
     Dosage: 8 TABS ONCE, ORAL
     Route: 048
     Dates: start: 20050813, end: 20050813

REACTIONS (2)
  - DIZZINESS [None]
  - OVERDOSE [None]
